FAERS Safety Report 7787997-7 (Version None)
Quarter: 2011Q3

REPORT INFORMATION
  Report Type: 
  Country: None (occurrence: None)
  Receive Date: 20110930
  Receipt Date: 20110928
  Transmission Date: 20111222
  Serious: Yes (Hospitalization)
  Sender: FDA-Public Use
  Company Number: FR-SP-2011-09335

PATIENT
  Age: 72 Year
  Sex: Male

DRUGS (2)
  1. IMMUCYST [Suspect]
     Indication: BLADDER CANCER
     Route: 043
     Dates: start: 20110606, end: 20110606
  2. IMMUCYST [Suspect]
     Route: 043
     Dates: start: 20110612, end: 20110612

REACTIONS (9)
  - PLEURAL EFFUSION [None]
  - DYSPNOEA [None]
  - HEPATOSPLENOMEGALY [None]
  - CELL DEATH [None]
  - PYREXIA [None]
  - WEIGHT DECREASED [None]
  - CHOLESTASIS [None]
  - LYMPHADENOPATHY MEDIASTINAL [None]
  - BOVINE TUBERCULOSIS [None]
